FAERS Safety Report 14233852 (Version 2)
Quarter: 2018Q1

REPORT INFORMATION
  Report Type: Spontaneous
  Country: RS (occurrence: RS)
  Receive Date: 20171128
  Receipt Date: 20180105
  Transmission Date: 20180508
  Serious: Yes (Other)
  Sender: FDA-Public Use
  Company Number: RS-NOVOPROD-573211

PATIENT
  Age: 6 Year
  Sex: Female

DRUGS (5)
  1. NORDITROPIN [Suspect]
     Active Substance: SOMATROPIN
     Dosage: 5 CLICKS
     Route: 065
     Dates: start: 20171220
  2. NORDITROPIN [Suspect]
     Active Substance: SOMATROPIN
     Indication: GROWTH FAILURE
     Dosage: 3 CLICKS
     Route: 065
  3. NORDITROPIN [Suspect]
     Active Substance: SOMATROPIN
     Dosage: 5 CLICKS
     Route: 065
  4. NORDITROPIN [Suspect]
     Active Substance: SOMATROPIN
     Dosage: 4 CLICKS
     Route: 065
  5. NORDITROPIN [Suspect]
     Active Substance: SOMATROPIN
     Dosage: 4 CLICKS
     Route: 065

REACTIONS (6)
  - Apathy [Recovered/Resolved]
  - Decreased appetite [Recovered/Resolved]
  - Night sweats [Recovered/Resolved]
  - Weight decreased [Recovered/Resolved]
  - Insomnia [Recovered/Resolved]
  - Pharyngeal paraesthesia [Recovered/Resolved]
